FAERS Safety Report 6522574-7 (Version None)
Quarter: 2009Q4

REPORT INFORMATION
  Report Type: 
  Country: None (occurrence: None)
  Receive Date: 20091224
  Receipt Date: 20091215
  Transmission Date: 20100525
  Serious: Yes (Death, Other)
  Sender: FDA-Public Use
  Company Number: MC200900437

PATIENT

DRUGS (5)
  1. ANGIOMAX [Suspect]
     Indication: PERCUTANEOUS CORONARY INTERVENTION
     Dosage: PER STANDARD PROTOCOL
  2. ASPIRIN [Concomitant]
  3. CLOPIDOGREL [Concomitant]
  4. REOPRO [Concomitant]
  5. EPTIFIBATIDE (EPTIFIBATIDE) [Concomitant]

REACTIONS (3)
  - CORONARY REVASCULARISATION [None]
  - MYOCARDIAL INFARCTION [None]
  - THROMBOSIS IN DEVICE [None]
